FAERS Safety Report 16159370 (Version 1)
Quarter: 2019Q2

REPORT INFORMATION
  Report Type: Report from Study
  Country: JP (occurrence: JP)
  Receive Date: 20190404
  Receipt Date: 20190404
  Transmission Date: 20190711
  Serious: Yes (Other)
  Sender: FDA-Public Use
  Company Number: JP-BAYER-2019-059089

PATIENT

DRUGS (2)
  1. MESALAZINE [Suspect]
     Active Substance: MESALAMINE
  2. BLINDED ACETYLSALICYLIC ACID (CARDIO) [Suspect]
     Active Substance: ASPIRIN

REACTIONS (1)
  - Drug-induced liver injury [Recovered/Resolved]
